FAERS Safety Report 17843516 (Version 1)
Quarter: 2020Q2

REPORT INFORMATION
  Report Type: Report from Study
  Country: CZ (occurrence: CZ)
  Receive Date: 20200531
  Receipt Date: 20200531
  Transmission Date: 20200714
  Serious: Yes (Death, Hospitalization)
  Sender: FDA-Public Use
  Company Number: CZ-TEVA-2020-CZ-1242335

PATIENT
  Age: 2 Year
  Sex: Male

DRUGS (2)
  1. PROPAFENONE. [Suspect]
     Active Substance: PROPAFENONE
     Route: 048
  2. VERAPAMIL [Suspect]
     Active Substance: VERAPAMIL HYDROCHLORIDE
     Route: 048

REACTIONS (6)
  - Accidental exposure to product by child [Unknown]
  - Dyspnoea [Fatal]
  - Toxicity to various agents [Fatal]
  - Coma [Fatal]
  - Multiple organ dysfunction syndrome [Fatal]
  - Muscle spasms [Fatal]
